FAERS Safety Report 5418009-8 (Version None)
Quarter: 2007Q3

REPORT INFORMATION
  Report Type: 
  Country: None (occurrence: None)
  Receive Date: 20070817
  Receipt Date: 20070808
  Transmission Date: 20080115
  Serious: Yes (Hospitalization)
  Sender: FDA-Public Use
  Company Number: US-AMGEN-STX237963

PATIENT
  Sex: Female

DRUGS (2)
  1. ENBREL [Suspect]
     Indication: RHEUMATOID ARTHRITIS
     Route: 058
     Dates: start: 20050101, end: 20060101
  2. METHOTREXATE [Concomitant]
     Dates: start: 20020101

REACTIONS (9)
  - ARTHRALGIA [None]
  - BRONCHITIS [None]
  - CELLULITIS [None]
  - INJECTION SITE BRUISING [None]
  - INJECTION SITE ERYTHEMA [None]
  - JOINT SWELLING [None]
  - OEDEMA PERIPHERAL [None]
  - PNEUMONIA [None]
  - SINUSITIS [None]
